FAERS Safety Report 5983764-5 (Version None)
Quarter: 2008Q4

REPORT INFORMATION
  Report Type: 
  Country: None (occurrence: None)
  Receive Date: 20081208
  Receipt Date: 20060213
  Transmission Date: 20090506
  Serious: Yes (Other)
  Sender: FDA-Public Use
  Company Number: US-ASTRAZENECA-2008UW26814

PATIENT
  Age: 49 Year
  Sex: Female
  Weight: 50.8 kg

DRUGS (1)
  1. TAMOXIFEN [Suspect]
     Indication: BREAST CANCER
     Route: 048

REACTIONS (6)
  - ARTHROPATHY [None]
  - BLOOD HEAVY METAL INCREASED [None]
  - BURNING SENSATION [None]
  - DYSURIA [None]
  - GASTROINTESTINAL HAEMORRHAGE [None]
  - OESTRADIOL INCREASED [None]
